FAERS Safety Report 5728814-6 (Version None)
Quarter: 2008Q2

REPORT INFORMATION
  Report Type: 
  Country: None (occurrence: None)
  Receive Date: 20080506
  Receipt Date: 20080424
  Transmission Date: 20081010
  Serious: Yes (Death, Other)
  Sender: FDA-Public Use
  Company Number: CA-ROCHE-550513

PATIENT
  Age: 50 Year
  Sex: Male
  Weight: 61 kg

DRUGS (18)
  1. PEGASYS [Suspect]
     Indication: HEPATITIS C
     Route: 058
     Dates: start: 20080205, end: 20080201
  2. COTAZYM [Concomitant]
     Route: 048
  3. COTAZYM [Concomitant]
     Route: 048
  4. METOPROLOL TARTRATE [Concomitant]
  5. AMLODIPINE [Concomitant]
  6. FUROSEMIDE [Concomitant]
  7. PANTOPRAZOLE SODIUM [Concomitant]
  8. RENAGEL [Concomitant]
  9. ZINC [Concomitant]
  10. REPLAVITE [Concomitant]
     Dosage: FREQUENCY^ EVERY 2 DAY (Q2D). DRUG REPORTED AS REPLIVITE.
  11. REPLAVITE [Concomitant]
     Dosage: FREQUENCY^ EVERY 2 DAY (Q2D). DRUG REPORTED AS REPLIVITE.
  12. REPLAVITE [Concomitant]
     Dosage: FREQUENCY^ EVERY 2 DAY (Q2D). DRUG REPORTED AS REPLIVITE.
  13. REPLAVITE [Concomitant]
     Dosage: FREQUENCY^ EVERY 2 DAY (Q2D). DRUG REPORTED AS REPLIVITE.
  14. REPLAVITE [Concomitant]
     Dosage: FREQUENCY^ EVERY 2 DAY (Q2D). DRUG REPORTED AS REPLIVITE.
  15. REPLAVITE [Concomitant]
     Dosage: FREQUENCY^ EVERY 2 DAY (Q2D). DRUG REPORTED AS REPLIVITE.
  16. REPLAVITE [Concomitant]
     Dosage: FREQUENCY^ EVERY 2 DAY (Q2D). DRUG REPORTED AS REPLIVITE.
  17. REPLAVITE [Concomitant]
     Dosage: FREQUENCY^ EVERY 2 DAY (Q2D). DRUG REPORTED AS REPLIVITE.
  18. REPLAVITE [Concomitant]
     Dosage: FREQUENCY^ EVERY 2 DAY (Q2D). DRUG REPORTED AS REPLIVITE.

REACTIONS (3)
  - ALANINE AMINOTRANSFERASE INCREASED [None]
  - ASPARTATE AMINOTRANSFERASE INCREASED [None]
  - DEATH [None]
